FAERS Safety Report 12469386 (Version 3)
Quarter: 2016Q4

REPORT INFORMATION
  Report Type: Spontaneous
  Country: JP (occurrence: JP)
  Receive Date: 20160615
  Receipt Date: 20161206
  Transmission Date: 20170207
  Serious: Yes (Other)
  Sender: FDA-Public Use
  Company Number: JP-JNJFOC-20160610076

PATIENT

DRUGS (5)
  1. SOVRIAD [Suspect]
     Active Substance: SIMEPREVIR
     Indication: HEPATITIS C
     Dosage: FOR 12 WEEKS
     Route: 048
  2. CYCLOSPORIN A [Interacting]
     Active Substance: CYCLOSPORINE
     Indication: IMMUNOSUPPRESSION
     Route: 065
  3. TACROLIMUS. [Interacting]
     Active Substance: TACROLIMUS
     Indication: IMMUNOSUPPRESSION
     Route: 065
  4. REBETOL [Suspect]
     Active Substance: RIBAVIRIN
     Indication: HEPATITIS C
     Dosage: FOR 24/36/48 WEEKS IN PATIENTS AT 600 MG/ 800 MG/ 1000 MG ACCORDING TO BODY WEIGHT
     Route: 048
  5. PEGINTRON [Suspect]
     Active Substance: PEGINTERFERON ALFA-2B
     Indication: HEPATITIS C
     Dosage: FOR 24 WEEKS IN FEW PATIENTS, FOR 36 WEEKS IN FEW PATIENTS AND FOR 48 WEEKS IN FEW PATIENTS
     Route: 058

REACTIONS (20)
  - Pancreatitis [Unknown]
  - Alopecia [Unknown]
  - Drug interaction [Unknown]
  - Thrombotic microangiopathy [Unknown]
  - Remission not achieved [Unknown]
  - Platelet count decreased [Unknown]
  - Pyrexia [Unknown]
  - Fatigue [Unknown]
  - Condition aggravated [Unknown]
  - Hyperkalaemia [Unknown]
  - Blood creatinine increased [Unknown]
  - White blood cell count decreased [Unknown]
  - Anaemia [Unknown]
  - Aspartate aminotransferase increased [Unknown]
  - Off label use [Unknown]
  - Product use issue [Unknown]
  - Decreased appetite [Unknown]
  - Stomatitis [Unknown]
  - Alanine aminotransferase increased [Unknown]
  - Arthralgia [Unknown]
